FAERS Safety Report 9479329 (Version 2)
Quarter: 2014Q1

REPORT INFORMATION
  Report Type: Report from Study
  Country: ES (occurrence: ES)
  Receive Date: 20130827
  Receipt Date: 20140130
  Transmission Date: 20141002
  Serious: Yes (Other)
  Sender: FDA-Public Use
  Company Number: ES-VERTEX PHARMACEUTICALS INC-2013-009069

PATIENT
  Sex: 0

DRUGS (5)
  1. TELAPREVIR [Suspect]
     Indication: CHRONIC HEPATITIS C
  2. PEG INTERFERON [Suspect]
     Indication: CHRONIC HEPATITIS C
     Dosage: DOSAGE FORM: UNSPECIFIED
     Route: 065
  3. PEG INTERFERON [Suspect]
     Dosage: DOSAGE FORM: UNSPECIFIED
     Route: 065
  4. RIBAVIRIN [Suspect]
     Indication: CHRONIC HEPATITIS C
     Dosage: DOSAGE FORM: UNSPECIFIED
     Route: 065
  5. RIBAVIRIN [Suspect]
     Dosage: DOSAGE FORM: UNSPECIFIED
     Route: 065

REACTIONS (11)
  - Neutropenia [Unknown]
  - Skin disorder [Unknown]
  - Skin infection [Unknown]
  - Soft tissue infection [Unknown]
  - Respiratory tract infection [Unknown]
  - Thrombocytopenia [Unknown]
  - Hepatic cirrhosis [Unknown]
  - Anaemia [Unknown]
  - Rash [Unknown]
  - Virologic failure [Unknown]
  - Pruritus [Unknown]
